FAERS Safety Report 5151739-4 (Version None)
Quarter: 2006Q4

REPORT INFORMATION
  Report Type: 
  Country: None (occurrence: None)
  Receive Date: 20061107
  Receipt Date: 20061023
  Transmission Date: 20070319
  Serious: Yes (Other)
  Sender: FDA-Public Use
  Company Number: CA200608002694

PATIENT
  Age: 81 Year
  Sex: Female

DRUGS (8)
  1. FORTEO [Suspect]
     Indication: OSTEOPOROSIS
     Dosage: 20 UG DAILY (1/D)
     Dates: start: 20050705, end: 20060808
  2. FORTEO [Concomitant]
  3. PARIET /JPN/ (RABEPRAZOLE SODIUM) [Concomitant]
  4. METAMUCIL (GLUCOSE MONOHYDRATE,  (SPAGHULA HUSK) [Concomitant]
  5. VITAMINS NOS [Concomitant]
  6. COD LIVER OIL [Concomitant]
  7. GRAVOL TAB [Concomitant]
  8. DIGESTIVES, INCL ENZYMES [Concomitant]

REACTIONS (7)
  - BLOOD CHLORIDE DECREASED [None]
  - EXTRASKELETAL OSTEOSARCOMA [None]
  - HAEMATOCRIT DECREASED [None]
  - HAEMOGLOBIN DECREASED [None]
  - POSTOPERATIVE WOUND INFECTION [None]
  - SKIN DISCOLOURATION [None]
  - WEIGHT INCREASED [None]
